FAERS Safety Report 6529172-X (Version None)
Quarter: 2010Q1

REPORT INFORMATION
  Report Type: 
  Country: None (occurrence: None)
  Receive Date: 20100107
  Receipt Date: 20100104
  Transmission Date: 20100710
  Serious: Yes (Hospitalization, Other)
  Sender: FDA-Public Use
  Company Number: CA-JNJFOC-20091206087

PATIENT
  Sex: Female
  Weight: 70 kg

DRUGS (9)
  1. REMICADE [Suspect]
     Dosage: SECOND INFUSION; LOADING DOSE
     Route: 042
  2. REMICADE [Suspect]
     Indication: CROHN'S DISEASE
     Dosage: FIRST INFUSION; LOADING DOSE
     Route: 042
  3. LOMOTIL [Concomitant]
  4. AERIUS [Concomitant]
  5. VANCOMYCIN HCL [Concomitant]
  6. ETHINYLESTRADIOL AND NORGESTREL [Concomitant]
  7. AVAMYS [Concomitant]
  8. RAMIPRIL [Concomitant]
  9. RABEPRAZOLE SODIUM [Concomitant]

REACTIONS (6)
  - HYPOKINESIA [None]
  - OEDEMA PERIPHERAL [None]
  - PHARYNGEAL OEDEMA [None]
  - PRURITUS [None]
  - RASH ERYTHEMATOUS [None]
  - SERUM SICKNESS [None]
